FAERS Safety Report 9919374 (Version 1)
Quarter: 2014Q1

REPORT INFORMATION
  Report Type: Report from Study
  Country: CA (occurrence: CA)
  Receive Date: 20140224
  Receipt Date: 20140224
  Transmission Date: 20141002
  Serious: Yes (Other)
  Sender: FDA-Public Use
  Company Number: CA-JNJFOC-20140213265

PATIENT
  Age: 65 Year
  Sex: Female
  Weight: 71 kg

DRUGS (9)
  1. REMICADE [Suspect]
     Indication: CROHN^S DISEASE
     Route: 042
     Dates: start: 20130321
  2. ZOFRAN [Concomitant]
     Route: 065
  3. PREDNISONE [Concomitant]
     Route: 048
  4. LANSOPRAZOLE [Concomitant]
     Route: 065
  5. METRONIDAZOLE [Concomitant]
     Route: 065
  6. PANTOLOC [Concomitant]
     Route: 065
  7. CIPRO [Concomitant]
     Route: 065
  8. CALCIUM [Concomitant]
     Route: 065
  9. AZOTHIOPRINE [Concomitant]
     Route: 065

REACTIONS (1)
  - Type 2 diabetes mellitus [Unknown]
